FAERS Safety Report 21808283 (Version 7)
Quarter: 2023Q2

REPORT INFORMATION
  Report Type: Report from Study
  Country: US (occurrence: US)
  Receive Date: 20230103
  Receipt Date: 20230623
  Transmission Date: 20230721
  Serious: Yes (Other)
  Sender: FDA-Public Use
  Company Number: US-002147023-NVSC2022US302216

PATIENT
  Age: 65 Year
  Sex: Male
  Weight: 114 kg

DRUGS (8)
  1. LEQVIO [Suspect]
     Active Substance: INCLISIRAN SODIUM
     Indication: Hypercholesterolaemia
     Dosage: UNK
     Route: 065
  2. LEQVIO [Suspect]
     Active Substance: INCLISIRAN SODIUM
     Indication: Hyperlipidaemia
     Dosage: UNK (DATE: 27 MAR (THIRD SHOT)
     Route: 065
  3. LEQVIO [Suspect]
     Active Substance: INCLISIRAN SODIUM
     Dosage: UNK (DATE: UNKNOWN IN SEP)
     Route: 065
  4. LEQVIO [Suspect]
     Active Substance: INCLISIRAN SODIUM
     Dosage: 284 MG
     Route: 058
     Dates: start: 20221227
  5. LEQVIO [Suspect]
     Active Substance: INCLISIRAN SODIUM
     Dosage: UNK
     Route: 058
  6. LEQVIO [Suspect]
     Active Substance: INCLISIRAN SODIUM
     Dosage: UNK
     Route: 065
  7. LEQVIO [Suspect]
     Active Substance: INCLISIRAN SODIUM
     Dosage: UNK (SECOND INJECTION)
     Route: 058
     Dates: start: 20230327
  8. CYMBALTA [Concomitant]
     Active Substance: DULOXETINE HYDROCHLORIDE
     Indication: Drug intolerance
     Dosage: UNK
     Route: 065

REACTIONS (13)
  - Diabetes mellitus inadequate control [Recovering/Resolving]
  - Blood glucose increased [Unknown]
  - Injection site pain [Unknown]
  - Arthralgia [Unknown]
  - Insomnia [Unknown]
  - Headache [Unknown]
  - Myalgia [Unknown]
  - Hypertension [Recovering/Resolving]
  - Middle insomnia [Unknown]
  - Sleep apnoea syndrome [Unknown]
  - Joint swelling [Unknown]
  - Pain in extremity [Unknown]
  - Tendon pain [Unknown]

NARRATIVE: CASE EVENT DATE: 20221228
